FAERS Safety Report 24815049 (Version 1)
Quarter: 2025Q1

REPORT INFORMATION
  Report Type: Spontaneous
  Country: CN (occurrence: CN)
  Receive Date: 20250107
  Receipt Date: 20250107
  Transmission Date: 20250408
  Serious: Yes (Hospitalization, Other)
  Sender: PFIZER
  Company Number: CN-PFIZER INC-PV202500000794

PATIENT
  Age: 46 Year
  Sex: Female
  Weight: 42 kg

DRUGS (1)
  1. DACOMITINIB [Suspect]
     Active Substance: DACOMITINIB
     Indication: Targeted cancer therapy
     Dosage: 45 MG, 1X/DAY
     Route: 048
     Dates: start: 20241207, end: 20241210

REACTIONS (4)
  - Eating disorder [Recovering/Resolving]
  - Perioral dermatitis [Recovering/Resolving]
  - Laryngeal pain [Recovering/Resolving]
  - Oral disorder [Recovering/Resolving]

NARRATIVE: CASE EVENT DATE: 20241210
